FAERS Safety Report 5383288-2 (Version None)
Quarter: 2007Q3

REPORT INFORMATION
  Report Type: 
  Country: None (occurrence: None)
  Receive Date: 20070710
  Receipt Date: 20070705
  Transmission Date: 20080115
  Serious: Yes (Other)
  Sender: FDA-Public Use
  Company Number: CH-SANOFI-SYNTHELABO-A01200707371

PATIENT
  Age: 61 Year
  Sex: Male

DRUGS (4)
  1. ZYPREXA [Concomitant]
     Indication: DEPRESSION
     Route: 048
     Dates: start: 20070428
  2. SEROPRAM [Concomitant]
     Indication: DEPRESSION
     Dosage: 40 MG/DAY
     Route: 048
     Dates: start: 20070428
  3. METHOTREXATE [Concomitant]
     Indication: PSORIATIC ARTHROPATHY
     Dosage: 2X10 MG/WEEK
     Route: 048
     Dates: start: 20030101
  4. PLAQUENIL [Suspect]
     Indication: PSORIATIC ARTHROPATHY
     Route: 048
     Dates: start: 20060907

REACTIONS (1)
  - AGITATED DEPRESSION [None]
